FAERS Safety Report 5882768-0 (Version None)
Quarter: 2008Q3

REPORT INFORMATION
  Report Type: 
  Country: None (occurrence: None)
  Receive Date: 20080913
  Receipt Date: 20080815
  Transmission Date: 20090109
  Serious: No
  Sender: FDA-Public Use
  Company Number: US-ABBOTT-08P-163-0471147-00

PATIENT
  Sex: Female
  Weight: 149.82 kg

DRUGS (6)
  1. HUMIRA [Suspect]
     Indication: PUSTULAR PSORIASIS
     Route: 050
     Dates: start: 20080601
  2. HUMIRA [Suspect]
     Indication: PSORIASIS
  3. PRINZIDE [Concomitant]
     Indication: HYPERTENSION
     Dosage: 20/25 MG, 1 IN 1 D
     Route: 048
     Dates: start: 20000101
  4. TACLINEX FEET AND HANDS [Concomitant]
     Indication: PSORIASIS
     Route: 061
  5. LIQUID TEARS/GELS OVER-THE-COUNTER [Concomitant]
     Indication: DRUG USE FOR UNKNOWN INDICATION
     Route: 047
     Dates: start: 20070101
  6. LIQUID TEARS/GELS OVER-THE-COUNTER [Concomitant]
     Route: 047
     Dates: start: 20070101

REACTIONS (1)
  - VISION BLURRED [None]
